FAERS Safety Report 8737358 (Version 2)
Quarter: 2012Q4

REPORT INFORMATION
  Report Type: 
  Country: US (occurrence: US)
  Receive Date: 20120822
  Receipt Date: 20121030
  Transmission Date: 20130627
  Serious: Yes (Death, Other)
  Sender: FDA-Public Use
  Company Number: US-BAYER-2012-085620

PATIENT
  Age: 76 Year
  Sex: Female

DRUGS (20)
  1. TRASYLOL [Suspect]
     Indication: AORTIC VALVE REPLACEMENT
     Dosage: 100 ml, UNK
     Dates: start: 20000426
  2. TRASYLOL [Suspect]
     Indication: AORTIC VALVE REPLACEMENT
     Dosage: 25 ml/hr infusion
     Dates: start: 20000426
  3. HYZAAR [Concomitant]
     Dosage: 12.5 mg, daily
     Route: 048
  4. LASIX [Concomitant]
     Dosage: 40 mg, BID
     Route: 048
  5. LANOXIN [Concomitant]
     Dosage: 0.125 mg, daily
     Route: 048
  6. CONTRAST MEDIA [Concomitant]
     Indication: CARDIAC CATHETERIZATION
  7. ZINACEF [Concomitant]
     Dosage: 1.5 g, UNK
     Route: 042
     Dates: start: 20000426
  8. NEOSYNEPHRINE [PHENYLEPHRINE HYDROCHLORIDE] [Concomitant]
     Dosage: UNK
     Route: 042
     Dates: start: 20000426
  9. AMIODARONE [Concomitant]
     Dosage: UNK
     Route: 042
     Dates: start: 20000426
  10. MIDAZOLAM [Concomitant]
     Dosage: 10 mg, UNK
     Route: 042
     Dates: start: 20000426
  11. FENTANYL [Concomitant]
     Dosage: 1250 mcg
     Route: 042
     Dates: start: 20000426
  12. VECURONIUM [Concomitant]
     Dosage: 10 mg, UNK
     Route: 042
     Dates: start: 20000426
  13. SOLUMEDROL [Concomitant]
     Dosage: 1 g, UNK
     Route: 042
     Dates: start: 20000426
  14. HEPARIN [Concomitant]
     Dosage: 15000 u, UNK
     Route: 042
     Dates: start: 20000426
  15. PROTAMINE [Concomitant]
     Dosage: 150 mg, UNK
     Route: 042
     Dates: start: 20000426
  16. NITROGLYCERIN [Concomitant]
     Dosage: UNK
     Route: 042
     Dates: start: 20000426
  17. POTASSIUM CHLORIDE [Concomitant]
     Dosage: UNK
     Dates: start: 20000426
  18. SODIUM BICARBONATE [Concomitant]
     Dosage: UNK
     Dates: start: 20000426
  19. MANNITOL [Concomitant]
     Dosage: UNK
     Dates: start: 20000426
  20. CALCIUM CHLORIDE [Concomitant]
     Dosage: UNK
     Dates: start: 20000426

REACTIONS (4)
  - Death [Fatal]
  - Renal failure acute [None]
  - Cardiac failure congestive [None]
  - Hypertensive nephropathy [None]
